FAERS Safety Report 17001377 (Version 1)
Quarter: 2019Q4

REPORT INFORMATION
  Report Type: Report from Study
  Country: US (occurrence: US)
  Receive Date: 20191106
  Receipt Date: 20191106
  Transmission Date: 20200122
  Serious: Yes (Hospitalization)
  Sender: FDA-Public Use
  Company Number: US-BRISTOL-MYERS SQUIBB COMPANY-BMS-2019-104609

PATIENT
  Age: 48 Year
  Sex: Female

DRUGS (2)
  1. NIVOLUMAB [Suspect]
     Active Substance: NIVOLUMAB
     Indication: COLORECTAL CANCER
     Dosage: 480 MILLIGRAM
     Route: 042
     Dates: start: 20191015, end: 20191022
  2. COPANLISIB. [Suspect]
     Active Substance: COPANLISIB
     Indication: COLORECTAL CANCER
     Dosage: 60 MILLIGRAM
     Route: 042
     Dates: start: 20191015, end: 20191022

REACTIONS (2)
  - Rash maculo-papular [Recovered/Resolved]
  - Mucosal inflammation [Recovered/Resolved]

NARRATIVE: CASE EVENT DATE: 20191028
